FAERS Safety Report 5839428-1 (Version None)
Quarter: 2008Q3

REPORT INFORMATION
  Report Type: 
  Country: None (occurrence: None)
  Receive Date: 20080806
  Receipt Date: 20080724
  Transmission Date: 20090109
  Serious: Yes (Hospitalization)
  Sender: FDA-Public Use
  Company Number: DSM-2008-00687

PATIENT
  Age: 85 Year
  Sex: Female

DRUGS (6)
  1. ALTEIS (OLMESARTAN MEDOXOMIL)(TABLET)(OLMESARTAN MEDOXOMIL) [Suspect]
     Indication: HYPERTENSION
     Dosage: ORAL
     Route: 048
     Dates: end: 20080414
  2. PROZAC [Suspect]
     Indication: DEPRESSION
     Dosage: 300 MG (150 MG,2 IN 1 D), ORAL
     Route: 048
     Dates: end: 20080414
  3. DEPAMIDE (VALPROMIDE)(VALPROMIDE) [Concomitant]
  4. TEMESTA (LORAZEPAM) (LORAZEPAM) [Concomitant]
  5. MOVICOL (SODIUM BICARBONATE, POTASSIUM CHLORIDE, SODIUM CHLORIDE, MACR [Concomitant]
  6. ZOCOR [Concomitant]

REACTIONS (5)
  - BLOOD PRESSURE DIASTOLIC DECREASED [None]
  - CONSTIPATION [None]
  - HYPONATRAEMIA [None]
  - IATROGENIC INJURY [None]
  - VITAMIN D DEFICIENCY [None]
